FAERS Safety Report 10256020 (Version 1)
Quarter: 2014Q2

REPORT INFORMATION
  Report Type: Spontaneous
  Country: US (occurrence: None)
  Receive Date: 20140530
  Receipt Date: 20140530
  Transmission Date: 20141212
  Serious: Yes (Hospitalization)
  Sender: FDA-Public Use
  Company Number: 2013036343

PATIENT
  Age: 11 Year
  Sex: Male
  Weight: 38.56 kg

DRUGS (9)
  1. HIZENTRA (IMMUNOGLOBULIN HUMAN NORMAL) [Suspect]
     Indication: IMMUNODEFICIENCY COMMON VARIABLE
     Dosage: 1X/WEEK, ??-???-2013; 4 DOSES; MULTIPLE SITES USING A PUMP SUBCUTANEOUS
     Route: 058
     Dates: start: 2013
  2. DIPHENHYDRAMINE (DIPHENHYDRAMINE) [Concomitant]
  3. LIDOCAINE/PRILOCAINE (EMLA) [Concomitant]
  4. EPI-PEN (EPINEPHRINE HYDROCHLORIDE) [Concomitant]
  5. ROCEPHIN (CEFTRIAXONE) [Concomitant]
  6. SODIUM CHLORIDE (SODIUM CHLORIDE) [Concomitant]
  7. HUMATE-P (FACTOR VIII (ANTIHAEMOPHLIC FACTOR) [Concomitant]
  8. ALBUTEROL (SALBUTAMOL) [Concomitant]
  9. ALBUTEROL SULFATE HFA (SALBUTAMOL SULFATE) [Concomitant]

REACTIONS (2)
  - Back pain [None]
  - Pain in extremity [None]
